FAERS Safety Report 5603989-8 (Version None)
Quarter: 2008Q1

REPORT INFORMATION
  Report Type: 
  Country: None (occurrence: None)
  Receive Date: 20080123
  Receipt Date: 20080123
  Transmission Date: 20080703
  Serious: Yes (Hospitalization)
  Sender: FDA-Public Use
  Company Number: None

PATIENT
  Age: 39 Year
  Sex: Female
  Weight: 66.8 kg

DRUGS (3)
  1. CELEXA [Suspect]
     Indication: ANXIETY
     Dosage: 40MG DAILY PO
     Route: 048
  2. CELEXA [Suspect]
     Indication: DEPRESSION
     Dosage: 40MG DAILY PO
     Route: 048
  3. LEXAPRO [Suspect]

REACTIONS (1)
  - SEROTONIN SYNDROME [None]
